FAERS Safety Report 4570333-7 (Version None)
Quarter: 2005Q1

REPORT INFORMATION
  Report Type: 
  Country: None (occurrence: None)
  Receive Date: 20050204
  Receipt Date: 20041208
  Transmission Date: 20050727
  Serious: Yes (Life-Threatening, Hospitalization)
  Sender: FDA-Public Use
  Company Number: DK-ROCHE-388542

PATIENT
  Age: 18 Year
  Sex: Female
  Weight: 64 kg

DRUGS (2)
  1. ROACCUTAN [Suspect]
     Indication: ACNE
     Route: 048
     Dates: start: 20040820, end: 20041118
  2. UNCLASSIFIED DRUG [Concomitant]
     Dosage: REPORTED AS CHLORAMFENIKOL.
     Dates: start: 20041116

REACTIONS (10)
  - ABSCESS [None]
  - ACNE [None]
  - BLEPHARITIS [None]
  - BLOOD ALKALINE PHOSPHATASE INCREASED [None]
  - CONDITION AGGRAVATED [None]
  - CONJUNCTIVITIS [None]
  - DIABETIC KETOACIDOSIS [None]
  - DISTURBANCE IN ATTENTION [None]
  - DIZZINESS [None]
  - PYREXIA [None]
